FAERS Safety Report 7798360-7 (Version None)
Quarter: 2011Q4

REPORT INFORMATION
  Report Type: 
  Country: None (occurrence: None)
  Receive Date: 20111005
  Receipt Date: 20110929
  Transmission Date: 20120403
  Serious: Yes (Other)
  Sender: FDA-Public Use
  Company Number: SG-BAYER-2011-092853

PATIENT
  Age: 51 Year
  Sex: Female

DRUGS (3)
  1. PHENYTOIN [Suspect]
     Dosage: UNK
     Dates: start: 20110804, end: 20110820
  2. CIPROFLOXACIN HCL [Suspect]
     Dosage: UNK
     Dates: start: 20110816, end: 20110818
  3. GENTAMICIN [Suspect]
     Dosage: UNK
     Dates: start: 20110818, end: 20110820

REACTIONS (2)
  - RASH [None]
  - DERMATITIS EXFOLIATIVE [None]
